FAERS Safety Report 8030785-7 (Version None)
Quarter: 2012Q1

REPORT INFORMATION
  Report Type: 
  Country: None (occurrence: None)
  Receive Date: 20120109
  Receipt Date: 20120106
  Transmission Date: 20120608
  Serious: Yes (Death)
  Sender: FDA-Public Use
  Company Number: SK-ROCHE-GNE321204

PATIENT
  Sex: Female

DRUGS (8)
  1. FUROSEMIDE [Concomitant]
     Indication: PRODUCT USED FOR UNKNOWN INDICATION
  2. DIGOXIN [Concomitant]
     Indication: PRODUCT USED FOR UNKNOWN INDICATION
  3. RANIBIZUMAB [Suspect]
     Indication: AGE-RELATED MACULAR DEGENERATION
     Dosage: 50 A?L, UNKNOWN
     Route: 050
     Dates: start: 20090914, end: 20100125
  4. OLICARD [Concomitant]
     Indication: PRODUCT USED FOR UNKNOWN INDICATION
  5. ANOPYRIN [Concomitant]
     Indication: PRODUCT USED FOR UNKNOWN INDICATION
  6. CORVATON [Concomitant]
     Indication: PRODUCT USED FOR UNKNOWN INDICATION
  7. CAVINTON [Concomitant]
     Indication: PRODUCT USED FOR UNKNOWN INDICATION
  8. TRIMETAZIDINE [Concomitant]
     Indication: PRODUCT USED FOR UNKNOWN INDICATION

REACTIONS (1)
  - DEATH [None]
